FAERS Safety Report 21166977 (Version 2)
Quarter: 2022Q3

REPORT INFORMATION
  Report Type: Other
  Country: US (occurrence: None)
  Receive Date: 20220803
  Receipt Date: 20220810
  Transmission Date: 20221027
  Serious: Yes (Death)
  Sender: FDA-Public Use
  Company Number: US-ROCHE-3151715

PATIENT
  Sex: Female

DRUGS (19)
  1. XELODA [Suspect]
     Active Substance: CAPECITABINE
     Indication: Colon cancer
     Dosage: TAKE 3 TABLETS  BY MOUTH IN THE MORNING AND TAKE 2 TABLETS BY MOUTH IN THE EVENING MONDAY-FRIDAY
     Route: 048
  2. XELODA [Suspect]
     Active Substance: CAPECITABINE
     Indication: Lymphoma
  3. VALIUM [Suspect]
     Active Substance: DIAZEPAM
     Indication: Product used for unknown indication
     Route: 065
  4. ASPIRIN [Concomitant]
     Active Substance: ASPIRIN
  5. ATORVASTATIN CALCIUM [Concomitant]
     Active Substance: ATORVASTATIN CALCIUM
  6. ESCITALOPRAM OXALATE [Concomitant]
     Active Substance: ESCITALOPRAM OXALATE
  7. GABAPENTIN [Concomitant]
     Active Substance: GABAPENTIN
  8. HYDROCODONE [Concomitant]
     Active Substance: HYDROCODONE
  9. ACETAMINOPHEN [Concomitant]
     Active Substance: ACETAMINOPHEN
  10. HYDROXYCHLOROQUINE SULFATE [Concomitant]
     Active Substance: HYDROXYCHLOROQUINE SULFATE
  11. IRON [Concomitant]
     Active Substance: IRON
  12. LEVOTHYROXINE SODIUM [Concomitant]
     Active Substance: LEVOTHYROXINE SODIUM
  13. LISINOPRIL [Concomitant]
     Active Substance: LISINOPRIL
  14. ONDANSETRON [Concomitant]
     Active Substance: ONDANSETRON
  15. ONDANSETRON HCL [Concomitant]
     Active Substance: ONDANSETRON HYDROCHLORIDE
  16. PANTOPRAZOLE SODIUM [Concomitant]
     Active Substance: PANTOPRAZOLE SODIUM
  17. PEG-3350 AND ELECTROLYTES [Concomitant]
     Active Substance: POLYETHYLENE GLYCOL 3350\POTASSIUM CHLORIDE\SODIUM BICARBONATE\SODIUM CHLORIDE\SODIUM SULFATE
  18. SULFASALAZINE [Concomitant]
     Active Substance: SULFASALAZINE
  19. ZOLPIDEM TARTRATE [Concomitant]
     Active Substance: ZOLPIDEM TARTRATE
     Route: 048

REACTIONS (1)
  - Death [Fatal]
